FAERS Safety Report 13255823 (Version 1)
Quarter: 2017Q1

REPORT INFORMATION
  Report Type: Spontaneous
  Country: GB (occurrence: GB)
  Receive Date: 20170221
  Receipt Date: 20170221
  Transmission Date: 20170428
  Serious: Yes (Other)
  Sender: FDA-Public Use
  Company Number: GB-PFIZER INC-2017067567

PATIENT
  Age: 18 Year
  Sex: Female
  Weight: 64 kg

DRUGS (2)
  1. DEPO-PROVERA [Suspect]
     Active Substance: MEDROXYPROGESTERONE ACETATE
     Indication: CONTRACEPTION
     Dosage: UNK
     Route: 051
     Dates: start: 20160101
  2. HUMAN INSULIN [Concomitant]
     Active Substance: INSULIN HUMAN
     Dosage: UNK

REACTIONS (5)
  - Acne [Not Recovered/Not Resolved]
  - Dyspareunia [Unknown]
  - Vulvovaginal dryness [Unknown]
  - Mood swings [Unknown]
  - Libido decreased [Unknown]
